FAERS Safety Report 7036833-5 (Version None)
Quarter: 2010Q4

REPORT INFORMATION
  Report Type: 
  Country: None (occurrence: None)
  Receive Date: 20101011
  Receipt Date: 20100929
  Transmission Date: 20110411
  Serious: Yes (Other)
  Sender: FDA-Public Use
  Company Number: AU-BAYER-201041078GPV

PATIENT
  Sex: Female

DRUGS (2)
  1. BETAFERON [Suspect]
     Indication: MULTIPLE SCLEROSIS
     Route: 058
     Dates: start: 20070301
  2. BETAFERON [Suspect]
     Route: 058

REACTIONS (4)
  - ADVERSE EVENT [None]
  - AUTONOMIC NEUROPATHY [None]
  - CHEST PAIN [None]
  - PALPITATIONS [None]
